FAERS Safety Report 10930824 (Version 2)
Quarter: 2015Q1

REPORT INFORMATION
  Report Type: Spontaneous
  Country: JP (occurrence: None)
  Receive Date: 20150317
  Receipt Date: 20150325
  Transmission Date: 20150721
  Serious: Yes (Other)
  Sender: FDA-Public Use
  Company Number: JP-20150076

PATIENT
  Age: 70 Year

DRUGS (2)
  1. LIPIODOL ULTRA-FLUIDE [Suspect]
     Active Substance: ETHIODIZED OIL
     Indication: THERAPEUTIC EMBOLISATION
     Dosage: UNK (1 IN 1 D), INTRA-ARTERIAL ?
     Route: 013
     Dates: start: 20110818, end: 20110818
  2. NBCA (N-BUTYL CYANCOCRYLATE) [Concomitant]

REACTIONS (3)
  - Vessel perforation [None]
  - Product use issue [None]
  - Cerebral haemorrhage [None]

NARRATIVE: CASE EVENT DATE: 20110818
